FAERS Safety Report 5798077-4 (Version None)
Quarter: 2008Q3

REPORT INFORMATION
  Report Type: 
  Country: None (occurrence: None)
  Receive Date: 20080702
  Receipt Date: 20071105
  Transmission Date: 20090109
  Serious: No
  Sender: FDA-Public Use
  Company Number: US-ASTRAZENECA-2007UW25567

PATIENT
  Age: 82 Year
  Sex: Male
  Weight: 82.6 kg

DRUGS (3)
  1. ZOLADEX [Suspect]
     Indication: PROSTATE CANCER
     Route: 058
     Dates: start: 20070721
  2. FLOMAX [Concomitant]
  3. FELODIPINE [Concomitant]

REACTIONS (3)
  - HYPERHIDROSIS [None]
  - NASAL CONGESTION [None]
  - RHINORRHOEA [None]
